FAERS Safety Report 6221501-X (Version None)
Quarter: 2009Q2

REPORT INFORMATION
  Report Type: 
  Country: None (occurrence: None)
  Receive Date: 20090610
  Receipt Date: 20090604
  Transmission Date: 20091009
  Serious: No
  Sender: FDA-Public Use
  Company Number: US-JNJFOC-20090602673

PATIENT
  Sex: Male

DRUGS (4)
  1. INVEGA [Suspect]
     Indication: SCHIZOAFFECTIVE DISORDER
     Route: 048
  2. LEXAPRO [Concomitant]
     Indication: SCHIZOAFFECTIVE DISORDER
     Route: 048
  3. KLONOPIN [Concomitant]
     Indication: SCHIZOAFFECTIVE DISORDER
     Route: 048
  4. ROZEREM [Concomitant]
     Indication: SLEEP DISORDER THERAPY
     Route: 048

REACTIONS (1)
  - EXCESSIVE EYE BLINKING [None]
